FAERS Safety Report 7246517-6 (Version None)
Quarter: 2011Q1

REPORT INFORMATION
  Report Type: 
  Country: None (occurrence: None)
  Receive Date: 20110126
  Receipt Date: 20110117
  Transmission Date: 20110831
  Serious: Yes (Other)
  Sender: FDA-Public Use
  Company Number: FR-AMGEN-FRASP2010008150

PATIENT
  Age: 79 Year
  Sex: Male
  Weight: 70 kg

DRUGS (9)
  1. OGAST [Concomitant]
     Indication: GASTROOESOPHAGEAL REFLUX DISEASE
  2. ZOXAN LP [Concomitant]
     Indication: MICTURITION URGENCY
     Dosage: 4 MG, UNK
     Route: 048
  3. LORATADINE [Concomitant]
     Indication: HYPERSENSITIVITY
  4. SERTRALINE HYDROCHLORIDE [Concomitant]
     Indication: DEPRESSION
     Dosage: 25 MG, UNK
     Route: 048
     Dates: start: 20080101
  5. LORATADINE [Concomitant]
     Indication: RHINITIS
     Dosage: 10 MG, UNK
     Route: 048
  6. OMEPRAZOLE [Concomitant]
     Dosage: UNK
  7. ENBREL [Suspect]
     Indication: PSORIASIS
     Dosage: 50 MG, 2X/WEEK
     Route: 058
     Dates: start: 20101020
  8. OGAST [Concomitant]
     Indication: GASTRITIS
     Dosage: 10 MG, UNK
     Route: 048
  9. LOSARTAN [Concomitant]
     Indication: HYPERTENSION
     Dosage: 50 MG, UNK
     Route: 048

REACTIONS (5)
  - HYPERHIDROSIS [None]
  - DIZZINESS [None]
  - MALAISE [None]
  - LOSS OF CONSCIOUSNESS [None]
  - HYPOTENSION [None]
